FAERS Safety Report 9550729 (Version 5)
Quarter: 2015Q2

REPORT INFORMATION
  Report Type: Report from Study
  Country: US (occurrence: US)
  Receive Date: 20130924
  Receipt Date: 20150527
  Transmission Date: 20150821
  Serious: Yes (Other)
  Sender: FDA-Public Use
  Company Number: US-SANOFI-AVENTIS-2013SA046956

PATIENT
  Age: 59 Year
  Sex: Female

DRUGS (1)
  1. AUBAGIO [Suspect]
     Active Substance: TERIFLUNOMIDE
     Indication: MULTIPLE SCLEROSIS
     Route: 048
     Dates: start: 20130419

REACTIONS (18)
  - Asthma [Unknown]
  - Nocturnal dyspnoea [Unknown]
  - Blood urine present [Unknown]
  - Visual impairment [Unknown]
  - Sinusitis [Unknown]
  - Headache [Unknown]
  - Rhinorrhoea [Unknown]
  - Vision blurred [Unknown]
  - Neurological examination [Unknown]
  - Feeling abnormal [Recovering/Resolving]
  - Gastrointestinal motility disorder [Unknown]
  - Nasal congestion [Unknown]
  - Alopecia [Unknown]
  - Abdominal discomfort [Recovered/Resolved]
  - Muscular weakness [Unknown]
  - Blood iron decreased [Not Recovered/Not Resolved]
  - Limb operation [Unknown]
  - Cough [Unknown]

NARRATIVE: CASE EVENT DATE: 2014
